FAERS Safety Report 25048989 (Version 1)
Quarter: 2025Q1

REPORT INFORMATION
  Report Type: Spontaneous
  Country: US (occurrence: US)
  Receive Date: 20250307
  Receipt Date: 20250307
  Transmission Date: 20250408
  Serious: No
  Sender: RECORDATI
  Company Number: US-RECORDATI RARE DISEASE INC.-2024002631

PATIENT

DRUGS (4)
  1. ISTURISA [Suspect]
     Active Substance: OSILODROSTAT PHOSPHATE
     Indication: Pituitary-dependent Cushing^s syndrome
     Dosage: 3 MILLIGRAM, QD
     Route: 048
     Dates: start: 20231114, end: 202312
  2. ISTURISA [Suspect]
     Active Substance: OSILODROSTAT PHOSPHATE
     Dosage: 2 MG IN THE MORNING AND 3 MG IN THE EVENING, BID
     Route: 048
     Dates: start: 20231222, end: 202404
  3. ISTURISA [Suspect]
     Active Substance: OSILODROSTAT PHOSPHATE
     Dosage: 1 MILLIGRAM, BID
     Route: 048
     Dates: start: 20240405
  4. NORETHINDRONE [Concomitant]
     Active Substance: NORETHINDRONE
     Indication: Contraception

REACTIONS (4)
  - Nausea [Unknown]
  - Vomiting [Unknown]
  - Cortisol decreased [Unknown]
  - Off label use [Recovered/Resolved]

NARRATIVE: CASE EVENT DATE: 20231114
